FAERS Safety Report 9347468 (Version 2)
Quarter: 2013Q2

REPORT INFORMATION
  Report Type: Report from Study
  Country: NL (occurrence: NL)
  Receive Date: 20130614
  Receipt Date: 20130628
  Transmission Date: 20140414
  Serious: Yes (Life-Threatening, Disabling, Other)
  Sender: FDA-Public Use
  Company Number: NL-AMGEN-NLDCT2013041718

PATIENT
  Age: 55 Year
  Sex: Male
  Weight: 81.8 kg

DRUGS (9)
  1. ETANERCEPT [Suspect]
     Indication: PRODUCT USED FOR UNKNOWN INDICATION
     Dosage: 25 MG, 2 TIMES/WK
     Route: 065
     Dates: start: 20051013, end: 20061031
  2. ETANERCEPT [Suspect]
     Dosage: 50 MG, WEEKLY
     Route: 065
     Dates: start: 20071009, end: 20130606
  3. DILTIAZEM [Concomitant]
     Indication: HYPERTENSION
     Dosage: UNK
     Route: 048
  4. TOLBUTAMIDE [Concomitant]
     Indication: DIABETES MELLITUS
     Dosage: UNK
     Route: 048
  5. ASCAL                              /00002702/ [Concomitant]
     Indication: CARDIOVASCULAR DISORDER
     Dosage: UNK
     Route: 048
  6. PANTOZOL                           /01263204/ [Concomitant]
     Dosage: UNK
     Route: 048
  7. PRAVASTATIN [Concomitant]
     Indication: HYPERCHOLESTEROLAEMIA
     Dosage: UNK
     Route: 048
  8. MESALAZINE [Concomitant]
     Indication: COLITIS ULCERATIVE
     Dosage: UNK
     Route: 048
  9. OXAZEPAM [Concomitant]
     Dosage: UNK UNK, AS NECESSARY

REACTIONS (1)
  - Plasma cell myeloma [Not Recovered/Not Resolved]
